FAERS Safety Report 7598276-5 (Version None)
Quarter: 2011Q3

REPORT INFORMATION
  Report Type: 
  Country: None (occurrence: None)
  Receive Date: 20110708
  Receipt Date: 20110628
  Transmission Date: 20111222
  Serious: Yes (Hospitalization, Other)
  Sender: FDA-Public Use
  Company Number: FI-GENENTECH-299615

PATIENT
  Sex: Female

DRUGS (11)
  1. MYOCRISIN [Concomitant]
     Indication: RHEUMATOID ARTHRITIS
     Dosage: 50 MG, 1/WEEK
     Route: 030
     Dates: start: 20091020
  2. RITUXAN [Suspect]
     Indication: RHEUMATOID ARTHRITIS
     Dosage: 1000 MG, UNK
     Route: 042
     Dates: start: 20090112, end: 20090813
  3. HUMIRA [Suspect]
     Indication: RHEUMATOID ARTHRITIS
     Dosage: 40 MG, QOW
     Route: 058
     Dates: start: 20081002, end: 20081201
  4. BISOPROLOL FUMARATE [Concomitant]
     Indication: HYPERTENSION
     Dosage: UNK
     Route: 048
  5. ENBREL [Suspect]
     Indication: RHEUMATOID ARTHRITIS
     Dosage: 50 MG, 1/WEEK
     Route: 058
     Dates: start: 20080411, end: 20081001
  6. PREDNISOLONE [Concomitant]
     Indication: RHEUMATOID ARTHRITIS
     Dosage: 200 UNK, UNK
     Route: 048
     Dates: start: 20061101
  7. OXIKLORIN [Concomitant]
     Indication: RHEUMATOID ARTHRITIS
     Dosage: UNK
     Route: 048
     Dates: start: 20061101
  8. ALENDRONATE SODIUM [Concomitant]
     Indication: OSTEOPOROSIS
     Dosage: 70 MG, 1/WEEK
     Route: 048
     Dates: start: 20090902
  9. AMLODIPINE [Concomitant]
     Indication: HYPERTENSION
     Dosage: UNK
  10. CALCICHEW D3 [Concomitant]
     Indication: OSTEOPOROSIS
     Dosage: UNK
     Route: 048
  11. PULMICORT [Concomitant]
     Indication: ASTHMA
     Dosage: UNK
     Route: 055

REACTIONS (8)
  - DYSPNOEA [None]
  - DRUG INEFFECTIVE [None]
  - PLEURAL EFFUSION [None]
  - GRANULOMA [None]
  - COUGH [None]
  - TUBERCULOSIS [None]
  - DYSPHAGIA [None]
  - C-REACTIVE PROTEIN INCREASED [None]
